FAERS Safety Report 4661599-3 (Version None)
Quarter: 2005Q2

REPORT INFORMATION
  Report Type: 
  Country: None (occurrence: None)
  Receive Date: 20050511
  Receipt Date: 20050511
  Transmission Date: 20051028
  Serious: Yes (Hospitalization)
  Sender: FDA-Public Use
  Company Number: None

PATIENT
  Age: 66 Year
  Sex: Male

DRUGS (2)
  1. CISPLATIN [Suspect]
     Indication: NEOPLASM MALIGNANT
     Dosage: 44 MG [4 DOSES]
     Dates: start: 20050228
  2. FLUOROURACIL [Suspect]
     Indication: NEOPLASM MALIGNANT
     Dosage: 1060 MG[ 4 DOSES]
     Dates: start: 20050228

REACTIONS (3)
  - DIZZINESS [None]
  - FALL [None]
  - FEBRILE NEUTROPENIA [None]
